FAERS Safety Report 13227546 (Version 1)
Quarter: 2017Q1

REPORT INFORMATION
  Report Type: Report from Study
  Country: NL (occurrence: NL)
  Receive Date: 20170213
  Receipt Date: 20170213
  Transmission Date: 20170428
  Serious: Yes (Other)
  Sender: FDA-Public Use
  Company Number: PHHY2016NL018856

PATIENT
  Age: 37 Year
  Sex: Female

DRUGS (4)
  1. SIGNIFOR LAR [Suspect]
     Active Substance: PASIREOTIDE
     Dosage: 60 MG SOLVENTS/2 ML ONCE PER 4 WEEKS
     Route: 030
  2. SIGNIFOR LAR [Suspect]
     Active Substance: PASIREOTIDE
     Dosage: 60 MG SOLVENTS/2 ML ONCE PER 4 WEEKS
     Route: 030
     Dates: start: 20160210
  3. SIGNIFOR LAR [Suspect]
     Active Substance: PASIREOTIDE
     Dosage: 60 MG SOLVENTS/2 ML ONCE PER 4 WEEKS
     Route: 030
     Dates: start: 20151218
  4. SIGNIFOR LAR [Suspect]
     Active Substance: PASIREOTIDE
     Dosage: 60 MG SOLVENTS/2 ML ONCE PER 4 WEEKS
     Route: 030
     Dates: start: 20160309

REACTIONS (5)
  - Diabetes mellitus [Not Recovered/Not Resolved]
  - Hypertension [Not Recovered/Not Resolved]
  - Headache [Not Recovered/Not Resolved]
  - Fatigue [Not Recovered/Not Resolved]
  - Dry mouth [Not Recovered/Not Resolved]

NARRATIVE: CASE EVENT DATE: 20160205
